FAERS Safety Report 23225430 (Version 1)
Quarter: 2023Q4

REPORT INFORMATION
  Report Type: Spontaneous
  Country: CL (occurrence: CL)
  Receive Date: 20231124
  Receipt Date: 20231124
  Transmission Date: 20240110
  Serious: Yes (Hospitalization)
  Sender: FDA-Public Use
  Company Number: CL-002147023-NVSC2023CL250173

PATIENT
  Sex: Female

DRUGS (2)
  1. TASIGNA [Suspect]
     Active Substance: NILOTINIB
     Indication: Chronic myeloid leukaemia
     Dosage: UNK (BY MOUTH)
     Route: 048
  2. DASATINIB [Suspect]
     Active Substance: DASATINIB
     Indication: Chronic myeloid leukaemia
     Dosage: UNK (BY MOUTH)
     Route: 048

REACTIONS (11)
  - Pleural effusion [Unknown]
  - Pericardial effusion [Unknown]
  - Colitis ulcerative [Unknown]
  - Oedema peripheral [Unknown]
  - Anaemia [Unknown]
  - Myelosuppression [Unknown]
  - Toxicity to various agents [Unknown]
  - Disease complication [Unknown]
  - Haemoglobin decreased [Unknown]
  - Platelet count decreased [Unknown]
  - Immunosuppression [Unknown]
